FAERS Safety Report 24422787 (Version 1)
Quarter: 2024Q4

REPORT INFORMATION
  Report Type: Spontaneous
  Country: US (occurrence: US)
  Receive Date: 20241010
  Receipt Date: 20241010
  Transmission Date: 20250115
  Serious: Yes (Other)
  Sender: KEDRION
  Company Number: US-KEDRION-009679

PATIENT
  Age: 67 Year
  Sex: Male

DRUGS (1)
  1. HUMAN IMMUNOGLOBULIN G [Suspect]
     Active Substance: HUMAN IMMUNOGLOBULIN G
     Indication: Guillain-Barre syndrome
     Dosage: FIVE-DAY COURSE
     Route: 042

REACTIONS (2)
  - Lacunar infarction [Unknown]
  - Off label use [Unknown]
